FAERS Safety Report 26115562 (Version 1)
Quarter: 2025Q4

REPORT INFORMATION
  Report Type: Spontaneous
  Country: BR (occurrence: BR)
  Receive Date: 20251203
  Receipt Date: 20251203
  Transmission Date: 20260118
  Serious: Yes (Hospitalization, Other)
  Sender: MITSUBISHI TANABE PHARMA
  Company Number: BR-TANABE_PHARMA-MTPA2025-0021278

PATIENT
  Age: 68 Year
  Sex: Male

DRUGS (5)
  1. RADICAVA [Suspect]
     Active Substance: EDARAVONE
     Dosage: UNK
     Route: 065
     Dates: start: 202412
  2. RADICAVA [Suspect]
     Active Substance: EDARAVONE
     Dosage: UNK
     Route: 065
     Dates: end: 202507
  3. RADICAVA [Suspect]
     Active Substance: EDARAVONE
     Indication: Amyotrophic lateral sclerosis
     Dosage: UNK (1ST DOSE)
     Route: 065
     Dates: start: 202407
  4. RADICAVA [Suspect]
     Active Substance: EDARAVONE
     Dosage: UNK (2ND CYCLE)
     Route: 065
     Dates: end: 202408
  5. RILUZOLE [Concomitant]
     Active Substance: RILUZOLE
     Indication: Muscle relaxant therapy
     Dosage: UNK
     Route: 065
     Dates: end: 202507

REACTIONS (5)
  - Urosepsis [Unknown]
  - Pneumonia [Unknown]
  - Communication disorder [Unknown]
  - Pruritus [Unknown]
  - Rash [Unknown]

NARRATIVE: CASE EVENT DATE: 20241201
